FAERS Safety Report 6276489-2 (Version None)
Quarter: 2009Q3

REPORT INFORMATION
  Report Type: 
  Country: None (occurrence: None)
  Receive Date: 20090722
  Receipt Date: 20090713
  Transmission Date: 20100115
  Serious: Yes (Hospitalization, Other)
  Sender: FDA-Public Use
  Company Number: US-ELI_LILLY_AND_COMPANY-US200906001867

PATIENT
  Sex: Female

DRUGS (2)
  1. FORTEO [Suspect]
     Dosage: UNK, UNK
     Dates: start: 20080801
  2. TEGRETOL [Concomitant]
     Indication: CONVULSION
     Dates: start: 19840101

REACTIONS (5)
  - ANGER [None]
  - BALANCE DISORDER [None]
  - CONTUSION [None]
  - LOGORRHOEA [None]
  - LOSS OF CONSCIOUSNESS [None]
